FAERS Safety Report 10161449 (Version 1)
Quarter: 2014Q2

REPORT INFORMATION
  Report Type: Spontaneous
  Country: US (occurrence: US)
  Receive Date: 20140509
  Receipt Date: 20140509
  Transmission Date: 20141212
  Serious: No
  Sender: FDA-Public Use
  Company Number: US-009507513-1405USA001154

PATIENT
  Sex: Male

DRUGS (3)
  1. JANUVIA [Suspect]
     Indication: DIABETES MELLITUS
     Dosage: UNK
     Route: 048
  2. GLYBURIDE [Concomitant]
  3. METFORMIN [Concomitant]

REACTIONS (4)
  - Spinal pain [Recovered/Resolved]
  - Spinal pain [Recovered/Resolved]
  - Spinal pain [Recovered/Resolved]
  - Spinal pain [Recovered/Resolved]
